FAERS Safety Report 4896740-0 (Version None)
Quarter: 2006Q1

REPORT INFORMATION
  Report Type: 
  Country: None (occurrence: None)
  Receive Date: 20060131
  Receipt Date: 20060120
  Transmission Date: 20060701
  Serious: Yes (Hospitalization)
  Sender: FDA-Public Use
  Company Number: FR-JNJFOC-20060105117

PATIENT
  Age: 82 Year
  Sex: Male

DRUGS (11)
  1. TOPALGIC [Suspect]
     Indication: DRUG USE FOR UNKNOWN INDICATION
     Route: 048
     Dates: start: 20051208, end: 20051217
  2. TEGRETOL [Suspect]
     Indication: DRUG USE FOR UNKNOWN INDICATION
     Route: 048
  3. CELEBREX [Suspect]
     Indication: DRUG USE FOR UNKNOWN INDICATION
     Route: 048
  4. NOCTRAN 10 [Concomitant]
     Route: 065
  5. NOCTRAN 10 [Concomitant]
     Route: 065
  6. NOCTRAN 10 [Concomitant]
     Route: 065
  7. RISPERDAL [Concomitant]
     Route: 048
  8. ARICEPT [Concomitant]
     Route: 048
  9. ALDACTONE [Concomitant]
     Route: 048
  10. XATRAL [Concomitant]
     Route: 048
  11. TRIVASTAL [Concomitant]
     Route: 048

REACTIONS (6)
  - ASPARTATE AMINOTRANSFERASE INCREASED [None]
  - DERMATITIS EXFOLIATIVE [None]
  - GENERALISED ERYTHEMA [None]
  - HYPERTHERMIA [None]
  - NEUTROPHIL PERCENTAGE INCREASED [None]
  - RENAL FAILURE [None]
